FAERS Safety Report 7954864 (Version 3)
Quarter: 2013Q1

REPORT INFORMATION
  Report Type: Report from Study
  Country: CA (occurrence: CA)
  Receive Date: 20110523
  Receipt Date: 20130320
  Transmission Date: 20140127
  Serious: Yes (Hospitalization)
  Sender: FDA-Public Use
  Company Number: CA-JNJFOC-20110208653

PATIENT
  Age: 84 Year
  Sex: Male

DRUGS (17)
  1. ABIRATERONE ACETATE [Suspect]
     Route: 048
  2. ABIRATERONE ACETATE [Suspect]
     Indication: PROSTATE CANCER METASTATIC
     Route: 048
     Dates: start: 20110126, end: 20110314
  3. PREDNISONE [Suspect]
     Indication: PROSTATE CANCER METASTATIC
     Route: 048
     Dates: end: 201101
  4. PREDNISONE [Suspect]
     Indication: PROSTATE CANCER METASTATIC
     Route: 048
     Dates: start: 20110215
  5. PREDNISONE [Suspect]
     Indication: PROSTATE CANCER METASTATIC
     Route: 048
     Dates: start: 20110126, end: 20110215
  6. PREDNISONE [Suspect]
     Indication: PROSTATE CANCER METASTATIC
     Route: 048
     Dates: start: 201101, end: 20110125
  7. OMEPRAZOLE [Concomitant]
     Route: 048
  8. SIMVASTATIN [Concomitant]
     Route: 048
  9. BROMAZEPAM [Concomitant]
     Route: 048
  10. SELENIUM [Concomitant]
     Route: 048
  11. ASCORBIC ACID [Concomitant]
     Route: 048
  12. CHOLECALCIFEROL [Concomitant]
     Route: 048
  13. MULTIVITAMINS [Concomitant]
     Route: 048
  14. CALCIUM CARBONATE [Concomitant]
     Route: 048
  15. ACETYLSALICYLIC ACID [Concomitant]
     Route: 048
  16. ALLOPURINOL [Concomitant]
     Route: 048
  17. DICLOFENAC/MISOPROSTOL [Concomitant]
     Route: 048

REACTIONS (3)
  - Adrenal insufficiency [Not Recovered/Not Resolved]
  - Prostate cancer [Not Recovered/Not Resolved]
  - Adrenal insufficiency [Recovered/Resolved]
